FAERS Safety Report 22726581 (Version 2)
Quarter: 2023Q4

REPORT INFORMATION
  Report Type: Spontaneous
  Country: JP (occurrence: JP)
  Receive Date: 20230720
  Receipt Date: 20231018
  Transmission Date: 20240109
  Serious: Yes (Hospitalization)
  Sender: FDA-Public Use
  Company Number: JP-Merck Healthcare KGaA-2023461681

PATIENT
  Age: 79 Year
  Sex: Female

DRUGS (5)
  1. METGLUCO [Suspect]
     Active Substance: METFORMIN HYDROCHLORIDE
     Indication: Product used for unknown indication
     Route: 048
  2. IMEGLIMIN HYDROCHLORIDE [Suspect]
     Active Substance: IMEGLIMIN HYDROCHLORIDE
     Indication: Product used for unknown indication
     Route: 048
  3. XULTOPHY 100/3.6 [Concomitant]
     Active Substance: INSULIN DEGLUDEC\LIRAGLUTIDE
     Indication: Product used for unknown indication
     Dosage: 14 UNITS BEFORE BEDTIME
  4. INSULIN ASPART [Concomitant]
     Active Substance: INSULIN ASPART
     Indication: Product used for unknown indication
     Dosage: 30 UNITS (10 UNITS EACH AFTER EVERY MEAL), GRADUALLY REDUCING
  5. DAPAGLIFLOZIN [Concomitant]
     Active Substance: DAPAGLIFLOZIN
     Indication: Product used for unknown indication
     Dosage: ADDITIONAL 5 MG DAILY

REACTIONS (3)
  - Fall [Unknown]
  - Femur fracture [Unknown]
  - Off label use [Unknown]

NARRATIVE: CASE EVENT DATE: 20230209
